FAERS Safety Report 11600550 (Version 1)
Quarter: 2015Q3

REPORT INFORMATION
  Report Type: Spontaneous
  Country: US (occurrence: US)
  Receive Date: 20150916
  Receipt Date: 20150916
  Transmission Date: 20151125
  Serious: Yes (Hospitalization, Other)
  Sender: FDA-Public Use
  Company Number: US-ELI_LILLY_AND_COMPANY-US201406009647

PATIENT
  Age: 49 Year
  Sex: Female
  Weight: 41.27 kg

DRUGS (1)
  1. HUMALOG [Suspect]
     Active Substance: INSULIN LISPRO
     Indication: PRODUCT USED FOR UNKNOWN INDICATION
     Route: 058

REACTIONS (7)
  - Feeling abnormal [Unknown]
  - Blood glucose decreased [Recovering/Resolving]
  - Hypoglycaemic unconsciousness [Unknown]
  - Diarrhoea [Unknown]
  - Blood glucose increased [Unknown]
  - Vomiting [Unknown]
  - Disorientation [Recovering/Resolving]

NARRATIVE: CASE EVENT DATE: 2006
